FAERS Safety Report 7508803-1 (Version None)
Quarter: 2011Q2

REPORT INFORMATION
  Report Type: 
  Country: None (occurrence: None)
  Receive Date: 20110527
  Receipt Date: 20110328
  Transmission Date: 20111010
  Serious: No
  Sender: FDA-Public Use
  Company Number: A0920292A

PATIENT
  Age: 73 Year
  Sex: Female

DRUGS (11)
  1. LEVAQUIN [Concomitant]
  2. VIVELLE-DOT [Concomitant]
  3. LORAZEPAM [Concomitant]
  4. VENTOLIN [Suspect]
     Indication: CHRONIC OBSTRUCTIVE PULMONARY DISEASE
     Dosage: 2PUFF AS REQUIRED
     Route: 055
     Dates: start: 20110326
  5. DULERA TABLET [Concomitant]
  6. SINGULAIR [Concomitant]
  7. DIOVAN [Concomitant]
  8. VERAMYST [Concomitant]
  9. BYSTOLIC [Concomitant]
  10. OMEPRAZOLE [Concomitant]
  11. CELEBREX [Concomitant]

REACTIONS (1)
  - VOMITING [None]
